FAERS Safety Report 5088599-6 (Version None)
Quarter: 2006Q3

REPORT INFORMATION
  Report Type: 
  Country: None (occurrence: None)
  Receive Date: 20060825
  Receipt Date: 20060816
  Transmission Date: 20061208
  Serious: Yes (Other)
  Sender: FDA-Public Use
  Company Number: BR-JNJFOC-20060804194

PATIENT
  Age: 38 Year
  Sex: Female
  Weight: 55 kg

DRUGS (3)
  1. EXTRA STRENGTH TYLENOL [Suspect]
     Indication: HEADACHE
     Route: 048
  2. EXTRA STRENGTH TYLENOL [Suspect]
     Indication: PYREXIA
     Route: 048
  3. POLARAMINE [Suspect]
     Indication: PHARYNGOLARYNGEAL PAIN

REACTIONS (5)
  - ANOREXIA [None]
  - APNOEA [None]
  - COGNITIVE DISORDER [None]
  - DIZZINESS [None]
  - SOMNOLENCE [None]
